FAERS Safety Report 4362762-1 (Version None)
Quarter: 2004Q2

REPORT INFORMATION
  Report Type: 
  Country: None (occurrence: None)
  Receive Date: 20040518
  Receipt Date: 20040505
  Transmission Date: 20050107
  Serious: Yes (Hospitalization, Disabling, Congenital Anomaly)
  Sender: FDA-Public Use
  Company Number: 04P-163-0251846-00

PATIENT
  Age: 1 Day
  Sex: Male

DRUGS (2)
  1. NORVIR [Suspect]
  2. PRENATAL MEDICATIONS [Suspect]

REACTIONS (22)
  - ALOPECIA [None]
  - ANOXIA [None]
  - ANTISOCIAL BEHAVIOUR [None]
  - CEREBRAL DISORDER [None]
  - CEREBRAL VENTRICLE DILATATION [None]
  - COMPLICATIONS OF MATERNAL EXPOSURE TO THERAPEUTIC DRUGS [None]
  - CONGENITAL ANOMALY [None]
  - DEPRESSED LEVEL OF CONSCIOUSNESS [None]
  - FEEDING PROBLEM IN NEWBORN [None]
  - GERM CELL CANCER [None]
  - HAEMORRHAGE [None]
  - HYPOTONIA [None]
  - HYPOTONIA NEONATAL [None]
  - INFARCTION [None]
  - LUNG DISORDER [None]
  - MATERNAL DRUGS AFFECTING FOETUS [None]
  - MECONIUM STAIN [None]
  - NEONATAL HYPOXIA [None]
  - NERVOUS SYSTEM DISORDER [None]
  - PERIVENTRICULAR LEUKOMALACIA [None]
  - PREMATURE BABY [None]
  - UTERINE HAEMORRHAGE [None]
